FAERS Safety Report 8888866 (Version 1)
Quarter: 2012Q4

REPORT INFORMATION
  Report Type: 
  Country: DE (occurrence: DE)
  Receive Date: 20121106
  Receipt Date: 20121106
  Transmission Date: 20130627
  Serious: Yes (Other)
  Sender: FDA-Public Use
  Company Number: DE-TEVA-367150GER

PATIENT
  Age: 31 Year
  Sex: Male
  Weight: 78 kg

DRUGS (1)
  1. AMOXICILLIN [Suspect]
     Indication: INFLUENZA
     Route: 048
     Dates: start: 20120227, end: 20120302

REACTIONS (5)
  - Hearing impaired [Not Recovered/Not Resolved]
  - Otitis media [Recovered/Resolved with Sequelae]
  - Inner ear inflammation [Recovered/Resolved with Sequelae]
  - Peripheral vascular disorder [Recovered/Resolved]
  - Rash pruritic [Recovered/Resolved]
